FAERS Safety Report 15452994 (Version 2)
Quarter: 2020Q2

REPORT INFORMATION
  Report Type: Spontaneous
  Country: DE (occurrence: DE)
  Receive Date: 20181001
  Receipt Date: 20200409
  Transmission Date: 20200713
  Serious: Yes (Other)
  Sender: FDA-Public Use
  Company Number: DE-TEVA-2018-DE-960087

PATIENT
  Age: 33 Year
  Sex: Female
  Weight: 70 kg

DRUGS (16)
  1. OXALIPLATIN. [Suspect]
     Active Substance: OXALIPLATIN
     Indication: ADENOCARCINOMA OF COLON
     Dosage: 85 [MG/M? ]
     Route: 041
     Dates: start: 20180403, end: 20180426
  2. METRONIDAZOL [Concomitant]
     Active Substance: METRONIDAZOLE
     Indication: INFECTION
     Dosage: 1500 MILLIGRAM DAILY; 1500 [MG/D ]
     Route: 042
     Dates: start: 20180415, end: 20180418
  3. NATRIUMPICOSULFAT [Concomitant]
     Indication: CONSTIPATION
     Dosage: START AND END OF TREATMENT UNKNOWN
     Route: 048
     Dates: start: 20180428, end: 20180428
  4. FOLS?URE [Concomitant]
     Indication: PROPHYLAXIS OF NEURAL TUBE DEFECT
     Dosage: .8 MILLIGRAM DAILY; 0.8 [MG/D ]/ START OF PROPHYLAXIS PROBABLY EARLIER
     Route: 048
     Dates: start: 20180401, end: 20180428
  5. OXYCODONE [Concomitant]
     Active Substance: OXYCODONE
     Indication: CANCER PAIN
     Dosage: 15 MILLIGRAM DAILY; 15 [MG/D ]/ START AND END OF TREATMENT UNKNOWN
     Route: 048
     Dates: start: 20180428, end: 20180428
  6. FOLINSAEURE [Concomitant]
     Active Substance: LEUCOVORIN
     Indication: DRUG TOXICITY PROPHYLAXIS
     Route: 041
     Dates: start: 20180403, end: 20180428
  7. PIPERACILLIN AND TAZOBACTAM [Concomitant]
     Active Substance: PIPERACILLIN SODIUM\TAZOBACTAM SODIUM
     Indication: INFECTION
     Route: 042
  8. MEROPENEM. [Concomitant]
     Active Substance: MEROPENEM
     Indication: INFECTION
     Route: 042
     Dates: start: 20180418, end: 20180426
  9. MACROGOL [Concomitant]
     Active Substance: POLYETHYLENE GLYCOLS
     Indication: CONSTIPATION
     Dosage: START AND END OF TREATMENT UNKNOWN
     Route: 048
     Dates: start: 20180428, end: 20180428
  10. 5-FLUOROURACIL [Suspect]
     Active Substance: FLUOROURACIL
     Indication: ADENOCARCINOMA OF COLON
     Dosage: 2800 [MG/M? /INSGESAMT ]/ FOLFOX
     Route: 041
     Dates: start: 20180403, end: 20180428
  11. MISOPROSTOL. [Concomitant]
     Active Substance: MISOPROSTOL
     Indication: ABORTION INDUCED
     Route: 048
     Dates: start: 20180430, end: 20180430
  12. VANCOMYCIN [Concomitant]
     Active Substance: VANCOMYCIN
     Indication: INFECTION
     Route: 042
     Dates: start: 20180418, end: 20180426
  13. GRIPPEIMPFSTOFF [Concomitant]
     Active Substance: INFLUENZA VIRUS VACCINE
     Indication: IMMUNISATION
     Route: 030
  14. CEFUROXIM [Concomitant]
     Active Substance: CEFUROXIME
     Indication: INFECTION
     Dosage: 1000 MILLIGRAM DAILY; 1000 [MG/D ]
     Route: 048
     Dates: start: 20180405, end: 20180415
  15. CEFTRIAXON [Concomitant]
     Active Substance: CEFTRIAXONE
     Indication: INFECTION
     Dosage: 4000 MILLIGRAM DAILY; 4000 [MG/D ]
     Route: 042
     Dates: start: 20180415, end: 20180418
  16. VOMEX A [Concomitant]
     Active Substance: DIMENHYDRINATE
     Indication: NAUSEA
     Dosage: 150 MILLIGRAM DAILY; 150 [MG/D ]
     Route: 048

REACTIONS (2)
  - Maternal exposure during pregnancy [Unknown]
  - Abortion spontaneous [Recovered/Resolved]
